FAERS Safety Report 4303472-6 (Version None)
Quarter: 2004Q1

REPORT INFORMATION
  Report Type: 
  Country: None (occurrence: None)
  Receive Date: 20040222
  Receipt Date: 20040212
  Transmission Date: 20041129
  Serious: No
  Sender: FDA-Public Use
  Company Number: 2004UW02495

PATIENT
  Age: 44 Year
  Sex: Female
  Weight: 45.8133 kg

DRUGS (13)
  1. SEROQUEL [Suspect]
     Indication: PERSONALITY CHANGE
     Dosage: TRITATED UP FROM 25 TO 400 MG/DAY
     Dates: start: 20020319, end: 20030501
  2. SEROQUEL [Suspect]
     Indication: SLEEP DISORDER
     Dosage: TRITATED UP FROM 25 TO 400 MG/DAY
     Dates: start: 20020319, end: 20030501
  3. SEROQUEL [Suspect]
     Indication: PERSONALITY CHANGE
     Dosage: 900 MG DAILY PO
     Route: 048
     Dates: start: 20010508
  4. SEROQUEL [Suspect]
     Indication: SLEEP DISORDER
     Dosage: 900 MG DAILY PO
     Route: 048
     Dates: start: 20010508
  5. TEGRETOL [Suspect]
  6. LANSOPRAZOLE [Concomitant]
  7. ACETAMINOPHEN [Concomitant]
  8. SIMETHICONE [Concomitant]
  9. ZYRTEC [Concomitant]
  10. SENOKOT [Concomitant]
  11. LACTULOSE [Concomitant]
  12. NULYTELY [Concomitant]
  13. IBUPROFEN [Concomitant]

REACTIONS (3)
  - DRUG INTERACTION [None]
  - DRUG TOXICITY [None]
  - PERSONALITY CHANGE [None]
